FAERS Safety Report 12042276 (Version 1)
Quarter: 2016Q1

REPORT INFORMATION
  Report Type: Spontaneous
  Country: US (occurrence: US)
  Receive Date: 20160208
  Receipt Date: 20160208
  Transmission Date: 20160526
  Serious: No
  Sender: FDA-Public Use
  Company Number: US-APOTEX-2015AP013742

PATIENT
  Age: 25 Year
  Sex: Male

DRUGS (1)
  1. PAXIL [Suspect]
     Active Substance: PAROXETINE HYDROCHLORIDE
     Indication: PRODUCT USED FOR UNKNOWN INDICATION
     Dosage: 20 MG, QD
     Route: 048

REACTIONS (6)
  - Restlessness [Not Recovered/Not Resolved]
  - Abnormal behaviour [Not Recovered/Not Resolved]
  - Sleep disorder [Not Recovered/Not Resolved]
  - Dyskinesia [Not Recovered/Not Resolved]
  - Eyelid ptosis [Not Recovered/Not Resolved]
  - Agitation [Not Recovered/Not Resolved]
